FAERS Safety Report 5580265-3 (Version None)
Quarter: 2008Q1

REPORT INFORMATION
  Report Type: 
  Country: None (occurrence: None)
  Receive Date: 20080103
  Receipt Date: 20080102
  Transmission Date: 20080703
  Serious: Yes (Hospitalization)
  Sender: FDA-Public Use
  Company Number: A0700996A

PATIENT
  Age: 82 Year
  Sex: Female

DRUGS (2)
  1. LAMICTAL [Suspect]
     Dosage: 25MG TWICE PER DAY
     Route: 048
     Dates: start: 20071101
  2. DILANTIN [Concomitant]

REACTIONS (3)
  - CONVULSION [None]
  - RASH [None]
  - ROSACEA [None]
